FAERS Safety Report 24353960 (Version 1)
Quarter: 2024Q3

REPORT INFORMATION
  Report Type: Spontaneous
  Country: US (occurrence: US)
  Receive Date: 20240923
  Receipt Date: 20240923
  Transmission Date: 20241017
  Serious: No
  Sender: SANDOZ
  Company Number: US-SANDOZ-SDZ2024US081692

PATIENT
  Sex: Male

DRUGS (1)
  1. HYCAMTIN [Suspect]
     Active Substance: TOPOTECAN HYDROCHLORIDE
     Indication: Prostate cancer
     Dosage: 3 CAPSULES BY MOUTH DAILY FOR 3 DAYS EVERY 21 DAYS
     Route: 048
     Dates: start: 202406

REACTIONS (1)
  - Nausea [Unknown]
